FAERS Safety Report 21548664 (Version 2)
Quarter: 2022Q4

REPORT INFORMATION
  Report Type: Spontaneous
  Country: US (occurrence: US)
  Receive Date: 20221103
  Receipt Date: 20221111
  Transmission Date: 20230112
  Serious: Yes (Hospitalization, Other)
  Sender: FDA-Public Use
  Company Number: US-BAYER-2022A148773

PATIENT
  Sex: Female

DRUGS (1)
  1. MIRENA [Suspect]
     Active Substance: LEVONORGESTREL
     Dosage: 20?G/DAY
     Route: 015

REACTIONS (6)
  - Uterine perforation [None]
  - Device breakage [None]
  - Mood swings [None]
  - Abdominal pain upper [None]
  - Fear [None]
  - Menstruation delayed [None]

NARRATIVE: CASE EVENT DATE: 20221013
